FAERS Safety Report 5389647-6 (Version None)
Quarter: 2007Q3

REPORT INFORMATION
  Report Type: 
  Country: None (occurrence: None)
  Receive Date: 20070717
  Receipt Date: 20070705
  Transmission Date: 20080115
  Serious: Yes (Hospitalization, Other)
  Sender: FDA-Public Use
  Company Number: US-AMGEN-KDL232868

PATIENT
  Sex: Male
  Weight: 96.7 kg

DRUGS (37)
  1. PROCRIT [Suspect]
     Indication: DIALYSIS
     Route: 065
     Dates: end: 20070703
  2. ALKERAN [Concomitant]
  3. AMITRIPTYLINE HCL [Concomitant]
  4. ADVAIR DISKUS 100/50 [Concomitant]
     Route: 055
  5. ANDROGEL [Concomitant]
  6. ASPIRIN [Concomitant]
  7. ATARAX [Concomitant]
  8. VITAMIN B-12 [Concomitant]
     Route: 051
  9. COLACE [Concomitant]
  10. COREG [Concomitant]
  11. DUONEB [Concomitant]
  12. ELAVIL [Concomitant]
  13. IRON [Concomitant]
  14. FISH OIL [Concomitant]
  15. FOLIC ACID [Concomitant]
  16. GLIPIZIDE [Concomitant]
  17. HUMULIN N [Concomitant]
  18. HUMULIN 70/30 [Concomitant]
  19. ZOCOR [Concomitant]
  20. REQUIP [Concomitant]
  21. SYNTHROID [Concomitant]
  22. SPIRIVA [Concomitant]
     Route: 055
  23. TRICOR [Concomitant]
  24. PHENERGAN HCL [Concomitant]
  25. RENAGEL [Concomitant]
  26. DARVOCET [Concomitant]
  27. XANAX [Concomitant]
  28. KAYEXALATE [Concomitant]
  29. LEVSIN [Concomitant]
  30. MECLIZINE HCL [Concomitant]
  31. METHADONE HYDROCHLORIDE [Concomitant]
  32. MIDODRINE HYDROCHLORIDE [Concomitant]
  33. NEXIUM [Concomitant]
  34. NIASPAN [Concomitant]
  35. NYSTATIN [Concomitant]
     Route: 061
  36. PLAVIX [Concomitant]
  37. NITROGLYCERIN [Concomitant]

REACTIONS (3)
  - ARTHRITIS INFECTIVE [None]
  - PLATELET COUNT DECREASED [None]
  - THERAPEUTIC RESPONSE DECREASED [None]
